FAERS Safety Report 21682641 (Version 4)
Quarter: 2023Q2

REPORT INFORMATION
  Report Type: Spontaneous
  Country: US (occurrence: US)
  Receive Date: 20221205
  Receipt Date: 20230627
  Transmission Date: 20230722
  Serious: No
  Sender: FDA-Public Use
  Company Number: US-PFIZER INC-PV202200116386

PATIENT
  Age: 78 Year
  Sex: Female

DRUGS (1)
  1. IBRANCE [Suspect]
     Active Substance: PALBOCICLIB
     Dosage: 75 MG, CYCLIC, (1 TABLET DAILY, TAKE ON DAYS 1 THRU 21 OF EACH 35 DAY CYCLE)
     Route: 048

REACTIONS (2)
  - Speech disorder [Unknown]
  - Off label use [Unknown]
